FAERS Safety Report 20751739 (Version 2)
Quarter: 2022Q2

REPORT INFORMATION
  Report Type: Report from Study
  Country: US (occurrence: US)
  Receive Date: 20220426
  Receipt Date: 20220509
  Transmission Date: 20220720
  Serious: Yes (Hospitalization)
  Sender: FDA-Public Use
  Company Number: US-NOVARTISPH-NVSC2022US093310

PATIENT
  Age: 11 Year
  Sex: Male
  Weight: 25.1 kg

DRUGS (12)
  1. TOPOTECAN [Suspect]
     Active Substance: TOPOTECAN HYDROCHLORIDE
     Indication: Neuroblastoma
     Dosage: 0.76 MG, PRN
     Route: 042
     Dates: start: 20220316
  2. TOPOTECAN [Suspect]
     Active Substance: TOPOTECAN HYDROCHLORIDE
     Indication: Refractory cancer
  3. VENETOCLAX [Suspect]
     Active Substance: VENETOCLAX
     Indication: Refractory cancer
     Dosage: 350 MG, QD
     Route: 048
     Dates: start: 20220314, end: 20220316
  4. CYCLOPHOSPHAMIDE [Suspect]
     Active Substance: CYCLOPHOSPHAMIDE
     Indication: Refractory cancer
     Dosage: 250 MG, QD
     Route: 042
     Dates: start: 20220316
  5. CYCLOPHOSPHAMIDE [Suspect]
     Active Substance: CYCLOPHOSPHAMIDE
     Indication: Neuroblastoma
  6. LORAZEPAM [Concomitant]
     Active Substance: LORAZEPAM
     Indication: Nausea
     Dosage: 1 MG, Q6H PRN
     Route: 048
     Dates: start: 20220317
  7. HEPARIN [Concomitant]
     Active Substance: HEPARIN SODIUM
     Indication: Unevaluable event
     Dosage: 10 U/ML, PRN
     Route: 042
     Dates: start: 20220317
  8. EMLA [Concomitant]
     Active Substance: LIDOCAINE\PRILOCAINE
     Indication: Central venous catheterisation
     Dosage: UNK, (1 AS REQUIRED)
     Route: 061
     Dates: start: 20220315
  9. SULFAMETHOXAZOLE\TRIMETHOPRIM [Concomitant]
     Active Substance: SULFAMETHOXAZOLE\TRIMETHOPRIM
     Indication: Antifungal prophylaxis
     Dosage: 80 MG, BID
     Route: 048
     Dates: start: 20211030
  10. ONDANSETRON [Concomitant]
     Active Substance: ONDANSETRON
     Indication: Nausea
     Dosage: 4 MG, (1 AS REQUIRED)
     Route: 048
     Dates: start: 20171118
  11. DRONABINOL [Concomitant]
     Active Substance: DRONABINOL
     Indication: Appetite disorder
     Dosage: 2.5 MG, (1 AS REQUIRED)
     Route: 048
     Dates: start: 20171004
  12. CHLORHEXIDINE GLUCONATE [Concomitant]
     Active Substance: CHLORHEXIDINE GLUCONATE
     Indication: Product used for unknown indication
     Dosage: 15 ML, QID
     Route: 065
     Dates: start: 20220328

REACTIONS (7)
  - Febrile neutropenia [Recovered/Resolved]
  - Pyrexia [Recovered/Resolved]
  - Febrile neutropenia [Unknown]
  - Fatigue [Unknown]
  - Oral pain [Unknown]
  - Pyrexia [Unknown]
  - Product use in unapproved indication [Unknown]

NARRATIVE: CASE EVENT DATE: 20220329
